FAERS Safety Report 17855199 (Version 1)
Quarter: 2020Q2

REPORT INFORMATION
  Report Type: Spontaneous
  Country: RU (occurrence: RU)
  Receive Date: 20200603
  Receipt Date: 20200603
  Transmission Date: 20200714
  Serious: Yes (Other)
  Sender: FDA-Public Use
  Company Number: NVSC2020RU152392

PATIENT
  Age: 9 Year
  Sex: Male

DRUGS (3)
  1. TACROLIMUS. [Suspect]
     Active Substance: TACROLIMUS
     Indication: GRAFT VERSUS HOST DISEASE
     Dosage: 30 MG/KG (FROM DAY +5)
     Route: 065
  2. MYCOPHENOLATE MOFETIL. [Concomitant]
     Active Substance: MYCOPHENOLATE MOFETIL
     Indication: GRAFT VERSUS HOST DISEASE
     Dosage: 30 MG/KG (FROM DAY +5)
     Route: 065
  3. CYCLOPHOSPHAMIDE. [Concomitant]
     Active Substance: CYCLOPHOSPHAMIDE
     Indication: GRAFT VERSUS HOST DISEASE
     Dosage: 50 MG/KG (DAY +3 AND +4)
     Route: 065

REACTIONS (8)
  - Nervous system disorder [Unknown]
  - Thrombotic microangiopathy [Unknown]
  - Product use in unapproved indication [Unknown]
  - Anuria [Unknown]
  - Hypertension [Unknown]
  - Blood creatinine increased [Unknown]
  - Cytomegalovirus infection [Unknown]
  - Acute kidney injury [Unknown]
